FAERS Safety Report 9067524 (Version 1)
Quarter: 2013Q1

REPORT INFORMATION
  Report Type: Spontaneous
  Country: TH (occurrence: TH)
  Receive Date: 20130128
  Receipt Date: 20130128
  Transmission Date: 20140127
  Serious: Yes (Hospitalization)
  Sender: FDA-Public Use
  Company Number: TH-009507513-1301THA010408

PATIENT
  Age: 72 Year
  Sex: Male

DRUGS (1)
  1. BOCEPREVIR [Suspect]
     Route: 048

REACTIONS (1)
  - Cellulitis [Unknown]
